FAERS Safety Report 26076853 (Version 2)
Quarter: 2025Q4

REPORT INFORMATION
  Report Type: Spontaneous
  Country: US (occurrence: US)
  Receive Date: 20251121
  Receipt Date: 20251127
  Transmission Date: 20260117
  Serious: Yes (Other)
  Sender: PURDUE
  Company Number: US-PURDUE PHARMA-USA-2025-0322303

PATIENT
  Sex: Male
  Weight: 64.86 kg

DRUGS (5)
  1. HYDROMORPHONE HYDROCHLORIDE [Suspect]
     Active Substance: HYDROMORPHONE HYDROCHLORIDE
     Indication: Product used for unknown indication
     Dosage: UNK
     Route: 065
     Dates: start: 1996
  2. HYDROCODONE BITARTRATE AND ACETAMINOPHEN [Suspect]
     Active Substance: ACETAMINOPHEN\HYDROCODONE BITARTRATE
     Indication: Pain management
     Dosage: 5-325 MG, BID
     Route: 048
     Dates: start: 20251023, end: 20251119
  3. HYDROCODONE BITARTRATE AND ACETAMINOPHEN [Suspect]
     Active Substance: ACETAMINOPHEN\HYDROCODONE BITARTRATE
     Indication: Back pain
  4. HYDROCODONE BITARTRATE AND ACETAMINOPHEN [Suspect]
     Active Substance: ACETAMINOPHEN\HYDROCODONE BITARTRATE
     Indication: Abdominal pain upper
  5. HYDROCODONE BITARTRATE AND ACETAMINOPHEN [Suspect]
     Active Substance: ACETAMINOPHEN\HYDROCODONE BITARTRATE
     Indication: Pain in extremity

REACTIONS (13)
  - Colon cancer [Unknown]
  - Fractured coccyx [Unknown]
  - Fall [Unknown]
  - Nervous system disorder [Unknown]
  - Musculoskeletal disorder [Unknown]
  - Tooth disorder [Unknown]
  - Bone density decreased [Unknown]
  - Visual impairment [Unknown]
  - Headache [Unknown]
  - Memory impairment [Unknown]
  - Anxiety [Unknown]
  - Adverse drug reaction [Unknown]
  - Drug ineffective [Unknown]
